FAERS Safety Report 4600082-8 (Version None)
Quarter: 2005Q1

REPORT INFORMATION
  Report Type: 
  Country: None (occurrence: None)
  Receive Date: 20050303
  Receipt Date: 20050224
  Transmission Date: 20050727
  Serious: Yes (Hospitalization)
  Sender: FDA-Public Use
  Company Number: THQ2005A00236

PATIENT
  Age: 65 Year
  Sex: Female

DRUGS (12)
  1. LANSOPRAZOLE [Suspect]
     Dosage: 15 MG (1 D) PER ORAL
     Route: 048
  2. IXPRIM (PARACETAMOL W/TRAMADOL) (TABLETS) [Suspect]
     Indication: ARTHROPATHY
     Dosage: 4 UT (1 D) PER ORAL
     Route: 048
     Dates: start: 20040823, end: 20040828
  3. LIPANTHYL (FENOFIBRATE) (TABLETS) [Suspect]
     Indication: HYPERLIPIDAEMIA
     Dosage: 160 MG (1 D) PER ORAL
     Route: 048
     Dates: start: 20040823, end: 20040828
  4. CELEBREX [Suspect]
     Indication: ARTHROPATHY
     Dosage: 200 MG (1 D) PER ORAL
     Route: 048
     Dates: end: 20040831
  5. ELISOR (PRAVASTATIN SODIUM) (TABLETS) [Suspect]
     Indication: HYPERLIPIDAEMIA
     Dosage: 20 MG (1 D) PER ORAL
     Route: 048
     Dates: end: 20040828
  6. TRINIPATCH (GLYCERYL TRINITRATE) [Concomitant]
  7. ALDACTONE [Concomitant]
  8. DIGOXIN [Concomitant]
  9. GLUCOR (ACARBOSE) [Concomitant]
  10. ACTRAPID (INSULIN   /N/A/) (INJECTION) [Concomitant]
  11. UMULINE (INSULIN HUMAN ZINC SUSPENSION) (INJECTION) [Concomitant]
  12. STAGID (METFORMIN EMBONATE) [Concomitant]

REACTIONS (7)
  - DERMATITIS ALLERGIC [None]
  - PHOTOSENSITIVITY REACTION [None]
  - PURPURA [None]
  - RASH ERYTHEMATOUS [None]
  - RASH PAPULAR [None]
  - RASH VESICULAR [None]
  - TOXIC SKIN ERUPTION [None]
